FAERS Safety Report 4364967-2 (Version None)
Quarter: 2004Q2

REPORT INFORMATION
  Report Type: 
  Country: None (occurrence: None)
  Receive Date: 20040521
  Receipt Date: 20040511
  Transmission Date: 20050107
  Serious: No
  Sender: FDA-Public Use
  Company Number: US-JNJFOC-20040304950

PATIENT
  Age: 62 Year
  Sex: Male
  Weight: 87.0906 kg

DRUGS (23)
  1. REMICADE [Suspect]
     Indication: CROHN'S DISEASE
     Dosage: 400 MG INTRAVENOUS
     Route: 042
     Dates: start: 20031224
  2. REMICADE [Suspect]
     Indication: CROHN'S DISEASE
     Dosage: 400 MG INTRAVENOUS
     Route: 042
     Dates: start: 20040130
  3. REMICADE [Suspect]
     Indication: CROHN'S DISEASE
     Dosage: 400 MG INTRAVENOUS
     Route: 042
     Dates: start: 20040326
  4. NITRO PATCH (GLYCERYL TRINITRATE) [Concomitant]
  5. PENTASA [Concomitant]
  6. ALLOPURINOL [Concomitant]
  7. METROPOLOL (METOPROLOL) [Concomitant]
  8. RANITIDINE [Concomitant]
  9. TRICOR [Concomitant]
  10. VIT B-12 (CYANOCOBALAMIN) [Concomitant]
  11. TRAZODONE HCL [Concomitant]
  12. POTASSIUM (POTASSIUM) [Concomitant]
  13. MAGNESIUM (MAGNESIUM) [Concomitant]
  14. VITAMIN E [Concomitant]
  15. MULTIVITAMIN (MULTIVITAMINS) [Concomitant]
  16. PROBIOTIC (ALL OTHER THERAPEUTIC PRODUCTS) [Concomitant]
  17. SIMETHICONE (DIMETICONE, ACTIVATED) [Concomitant]
  18. DICYCLOMINE [Concomitant]
  19. PHENEGRAN (PROMETHAZINE HYDROCHLORIDE) [Concomitant]
  20. TYLENOL [Concomitant]
  21. OXYCODONE HCL [Concomitant]
  22. BENADRYL [Concomitant]
  23. GLUCOSAMINE AND CONDROITIN (GLUCOSAMINE W; CHONDROITIN SULFATES) [Concomitant]

REACTIONS (1)
  - NO ADVERSE EFFECT [None]
